FAERS Safety Report 4752278-2 (Version None)
Quarter: 2005Q3

REPORT INFORMATION
  Report Type: 
  Country: None (occurrence: None)
  Receive Date: 20050825
  Receipt Date: 20050812
  Transmission Date: 20060218
  Serious: Yes (Hospitalization, Other)
  Sender: FDA-Public Use
  Company Number: 200512381EU

PATIENT
  Age: 62 Year
  Sex: Male

DRUGS (3)
  1. NICODERM CQ [Suspect]
     Route: 062
     Dates: start: 20050101, end: 20050707
  2. NICODERM CQ [Suspect]
     Route: 062
     Dates: start: 20050101
  3. ENALAPRIL MALEATE [Concomitant]

REACTIONS (8)
  - ANGINA PECTORIS [None]
  - ARTERIAL OCCLUSIVE DISEASE [None]
  - CHEST PAIN [None]
  - ERUCTATION [None]
  - FLATULENCE [None]
  - HYPERTENSION [None]
  - INTENTIONAL MISUSE [None]
  - NIGHTMARE [None]
